FAERS Safety Report 10502320 (Version 1)
Quarter: 2014Q4

REPORT INFORMATION
  Report Type: Spontaneous
  Country: US (occurrence: None)
  Receive Date: 20141003
  Receipt Date: 20141003
  Transmission Date: 20150528
  Serious: Yes (Other)
  Sender: FDA-Public Use
  Company Number: DEP_02300_2014

PATIENT
  Sex: Male

DRUGS (1)
  1. GRALISE [Suspect]
     Active Substance: GABAPENTIN
     Indication: PRODUCT USED FOR UNKNOWN INDICATION
     Dosage: (DF, AFTER THE EVENING MEAL ORAL)
     Route: 048
     Dates: start: 2014, end: 2014

REACTIONS (3)
  - Pain [None]
  - Memory impairment [None]
  - Concussion [None]

NARRATIVE: CASE EVENT DATE: 2014
